FAERS Safety Report 24800377 (Version 1)
Quarter: 2025Q1

REPORT INFORMATION
  Report Type: Report from Study
  Country: GB (occurrence: GB)
  Receive Date: 20250102
  Receipt Date: 20250102
  Transmission Date: 20250408
  Serious: Yes (Death, Life-Threatening)
  Sender: PFIZER
  Company Number: GB-PFIZER INC-202400335736

PATIENT

DRUGS (2)
  1. TRANEXAMIC ACID [Suspect]
     Active Substance: TRANEXAMIC ACID
     Indication: Acute promyelocytic leukaemia
     Route: 042
  2. TRETINOIN [Suspect]
     Active Substance: TRETINOIN
     Indication: Acute promyelocytic leukaemia
     Dosage: 45 MG/M2, DAILY (6 WEEKS)

REACTIONS (2)
  - Organ failure [Fatal]
  - Vascular occlusion [Fatal]
